FAERS Safety Report 9096953 (Version 1)
Quarter: 2013Q1

REPORT INFORMATION
  Report Type: Spontaneous
  Country: US (occurrence: None)
  Receive Date: 20130125
  Receipt Date: 20130125
  Transmission Date: 20140127
  Serious: No
  Sender: FDA-Public Use
  Company Number: USA/USA/13/0027538

PATIENT
  Age: 79 Year
  Sex: Male
  Weight: 68.04 kg

DRUGS (4)
  1. SECTRAL (ACEBUTOLOL HYDROCHLORIDE) [Suspect]
     Indication: VENTRICULAR EXTRASYSTOLES
     Dosage: 200MG, 3IN 1D
     Dates: start: 20121128, end: 20121222
  2. SECTRAL (ACEBUTOLOL HYDROCHLORIDE) [Suspect]
     Indication: ARRHYTHMIA
     Dosage: 200MG, 3IN 1D
     Dates: start: 20121128, end: 20121222
  3. DETROL (TOLTERODINE L-TARTATE) [Concomitant]
  4. OMEPRAZOLE (OMEPRAZOLE) [Concomitant]

REACTIONS (2)
  - Extrasystoles [None]
  - Condition aggravated [None]
